FAERS Safety Report 21846640 (Version 1)
Quarter: 2023Q1

REPORT INFORMATION
  Report Type: Spontaneous
  Country: IN (occurrence: IN)
  Receive Date: 20230111
  Receipt Date: 20230111
  Transmission Date: 20230417
  Serious: Yes (Hospitalization, Other)
  Sender: FDA-Public Use
  Company Number: IN-IPCA LABORATORIES LIMITED-IPC-2023-IN-000024

PATIENT

DRUGS (4)
  1. WARFARIN [Suspect]
     Active Substance: WARFARIN
     Indication: Rheumatic heart disease
     Dosage: 5 MILLIGRAM, QD
     Route: 065
  2. WARFARIN [Suspect]
     Active Substance: WARFARIN
     Indication: Mitral valve stenosis
  3. FUROSEMIDE [Concomitant]
     Active Substance: FUROSEMIDE
     Indication: Rheumatic heart disease
     Dosage: 20 MILLIGRAM, BID
     Route: 065
  4. FUROSEMIDE [Concomitant]
     Active Substance: FUROSEMIDE
     Indication: Mitral valve stenosis
     Dosage: 10 MILLIGRAM, BID
     Route: 065

REACTIONS (2)
  - Skin necrosis [Recovering/Resolving]
  - Oedema peripheral [Recovering/Resolving]
